FAERS Safety Report 6608835 (Version 16)
Quarter: 2013Q3

REPORT INFORMATION
  Report Type: Spontaneous
  Country: US (occurrence: US)
  Receive Date: 20080407
  Receipt Date: 20130813
  Transmission Date: 20140515
  Serious: Yes (Other)
  Sender: FDA-Public Use
  Company Number: PHEH2008US03156

PATIENT
  Age: 71 Year
  Sex: Male

DRUGS (14)
  1. ZOMETA [Suspect]
     Indication: BONE LOSS
     Dosage: 4 MG, QMO
     Dates: start: 20050708, end: 200609
  2. CASODEX [Concomitant]
  3. LUPRON [Concomitant]
  4. AMBIEN [Concomitant]
  5. SYNTHROID [Concomitant]
  6. FLAGYL [Concomitant]
  7. LORCET PLUS [Concomitant]
  8. TYLENOL [Concomitant]
  9. PEN-VEE-K [Concomitant]
     Dosage: 500 MG,
  10. LAXATIVES [Concomitant]
     Indication: CONSTIPATION
  11. KETOCONAZOLE [Concomitant]
  12. LUNESTA [Concomitant]
  13. HYDROCORTISONE [Concomitant]
  14. ALEVE                              /00256202/ [Concomitant]

REACTIONS (47)
  - Osteonecrosis of jaw [Unknown]
  - Injury [Unknown]
  - Pain [Unknown]
  - Anxiety [Unknown]
  - Physical disability [Unknown]
  - Pain in jaw [Unknown]
  - Poor dental condition [Unknown]
  - Purulent discharge [Unknown]
  - Tooth infection [Unknown]
  - Bone erosion [Unknown]
  - Osteitis [Unknown]
  - Swelling face [Recovering/Resolving]
  - Osteomyelitis [Unknown]
  - Metastases to bone [Unknown]
  - Syncope [Unknown]
  - Chest discomfort [Unknown]
  - Prostate cancer [Unknown]
  - Prostatic specific antigen increased [Unknown]
  - Decreased appetite [Unknown]
  - Weight decreased [Unknown]
  - Thrombocytopenia [Unknown]
  - Hypertension [Unknown]
  - Hemiparesis [Unknown]
  - Chest pain [Unknown]
  - Ventricular extrasystoles [Unknown]
  - Hepatic lesion [Unknown]
  - Renal cyst [Unknown]
  - Rectal haemorrhage [Unknown]
  - Pain in extremity [Unknown]
  - Pelvic pain [Unknown]
  - Red blood cell count decreased [Unknown]
  - Blood potassium increased [Unknown]
  - Blood glucose increased [Unknown]
  - Blood creatinine increased [Unknown]
  - Creatinine renal clearance decreased [Unknown]
  - Joint swelling [Recovered/Resolved]
  - Malaise [Unknown]
  - Myalgia [Unknown]
  - Constipation [Recovered/Resolved]
  - Dizziness [Unknown]
  - Depression [Unknown]
  - Anaemia [Unknown]
  - Hot flush [Unknown]
  - Spinal osteoarthritis [Unknown]
  - Impaired healing [Unknown]
  - Atelectasis [Unknown]
  - Hypercalcaemia [Unknown]
